FAERS Safety Report 9137059 (Version 1)
Quarter: 2013Q1

REPORT INFORMATION
  Report Type: Spontaneous
  Country: US (occurrence: US)
  Receive Date: 20130219
  Receipt Date: 20130219
  Transmission Date: 20140127
  Serious: No
  Sender: FDA-Public Use
  Company Number: US-BRISTOL-MYERS SQUIBB COMPANY-16790529

PATIENT
  Age: 50 Year
  Sex: Female
  Weight: 53.97 kg

DRUGS (11)
  1. ORENCIA FOR INJ [Suspect]
     Indication: RHEUMATOID ARTHRITIS
     Dosage: LAST INF: 06JUL12
     Route: 042
     Dates: start: 201112
  2. LITHIUM [Concomitant]
  3. PREMARIN [Concomitant]
  4. LISINOPRIL [Concomitant]
  5. LEVOTHYROXINE [Concomitant]
  6. CELEBREX [Concomitant]
  7. NEXIUM [Concomitant]
  8. PREDNISONE [Concomitant]
  9. AMITRIPTYLINE [Concomitant]
  10. METHOTREXATE [Concomitant]
  11. FOLIC ACID [Concomitant]

REACTIONS (9)
  - Tension [Unknown]
  - Irritability [Unknown]
  - Fatigue [Unknown]
  - Malaise [Unknown]
  - Chest pain [Recovered/Resolved]
  - Palpitations [Recovered/Resolved]
  - Feeling abnormal [Unknown]
  - Anxiety [Unknown]
  - Neck pain [Unknown]
